FAERS Safety Report 25834552 (Version 2)
Quarter: 2025Q4

REPORT INFORMATION
  Report Type: Spontaneous
  Country: EU (occurrence: EU)
  Receive Date: 20250923
  Receipt Date: 20251004
  Transmission Date: 20260117
  Serious: No
  Sender: SANOFI AVENTIS
  Company Number: EU-BIOVITRUM-2025-ES-012935

PATIENT
  Age: 13 Year
  Sex: Male

DRUGS (2)
  1. ELOCTA [Suspect]
     Active Substance: EFMOROCTOCOG ALFA
     Indication: Factor VIII deficiency
     Dosage: UNK UNK, TIW (THREE TIMES PER WEEK)
     Route: 065
     Dates: start: 201901, end: 202409
  2. ELOCTA [Suspect]
     Active Substance: EFMOROCTOCOG ALFA
     Indication: Factor VIII deficiency
     Dosage: UNK UNK, TIW (THREE TIMES PER WEEK)
     Route: 065
     Dates: start: 201901, end: 202409

REACTIONS (1)
  - No adverse event [Unknown]
